FAERS Safety Report 5749296-4 (Version None)
Quarter: 2008Q2

REPORT INFORMATION
  Report Type: 
  Country: None (occurrence: None)
  Receive Date: 20080527
  Receipt Date: 20080516
  Transmission Date: 20081010
  Serious: Yes (Hospitalization)
  Sender: FDA-Public Use
  Company Number: JP-JNJFOC-20080500327

PATIENT
  Sex: Male

DRUGS (10)
  1. MICONAZOLE [Suspect]
     Route: 048
  2. MICONAZOLE [Suspect]
     Indication: ORAL CANDIDIASIS
     Route: 048
  3. WARFARIN SODIUM [Interacting]
     Indication: DRUG USE FOR UNKNOWN INDICATION
     Route: 048
  4. ISOSORBIDE DINITRATE [Concomitant]
     Route: 048
  5. NICORANDIL [Concomitant]
     Route: 048
  6. CANDESARTAN CILEXETIL [Concomitant]
     Route: 048
  7. TICLOPIDINE HYDROCHLORIDE [Concomitant]
     Route: 048
  8. ASPIRIN [Concomitant]
     Route: 048
  9. MONTELUKAST SODIUM [Concomitant]
     Route: 048
  10. PREDNISOLONE [Concomitant]
     Route: 048

REACTIONS (2)
  - DRUG INTERACTION [None]
  - EPISTAXIS [None]
